FAERS Safety Report 11415874 (Version 1)
Quarter: 2015Q3

REPORT INFORMATION
  Report Type: Report from Study
  Country: IL (occurrence: IL)
  Receive Date: 20150825
  Receipt Date: 20150825
  Transmission Date: 20151125
  Serious: Yes (Hospitalization)
  Sender: FDA-Public Use
  Company Number: IL-UNITED THERAPEUTICS-P01-810

PATIENT
  Age: 34 Year
  Sex: Female
  Weight: 65 kg

DRUGS (5)
  1. NIFEDIPINE. [Concomitant]
     Active Substance: NIFEDIPINE
     Route: 048
     Dates: start: 19990817
  2. LASIX [Concomitant]
     Active Substance: FUROSEMIDE
     Route: 048
     Dates: start: 19990817
  3. ALDOSPIRONE [Concomitant]
     Active Substance: SPIRONOLACTONE
     Route: 048
     Dates: start: 19990817
  4. TREPROSTINIL SODIUM (SQ/IV) [Suspect]
     Active Substance: TREPROSTINIL SODIUM
     Indication: PULMONARY HYPERTENSION
     Dosage: 17.5 NG/KG/MIN
     Route: 058
     Dates: start: 19990819
  5. COUMADIN [Concomitant]
     Active Substance: WARFARIN SODIUM
     Dates: start: 19990817

REACTIONS (2)
  - Vertigo [Recovered/Resolved with Sequelae]
  - Sudden hearing loss [Recovered/Resolved with Sequelae]

NARRATIVE: CASE EVENT DATE: 20010730
